FAERS Safety Report 4380203-5 (Version None)
Quarter: 2004Q2

REPORT INFORMATION
  Report Type: 
  Country: None (occurrence: None)
  Receive Date: 20040601
  Receipt Date: 20040126
  Transmission Date: 20050107
  Serious: No
  Sender: FDA-Public Use
  Company Number: WAES0312USA02185

PATIENT
  Sex: Female

DRUGS (3)
  1. ZETIA [Suspect]
     Indication: BLOOD CHOLESTEROL INCREASED
     Dosage: 10 MG/DAILY/PO
     Route: 048
     Dates: start: 20030601, end: 20031216
  2. LIPITOR [Concomitant]
  3. PRINIVIL [Concomitant]

REACTIONS (2)
  - DRUG INEFFECTIVE [None]
  - FLANK PAIN [None]
